FAERS Safety Report 20383281 (Version 1)
Quarter: 2022Q1

REPORT INFORMATION
  Report Type: Spontaneous
  Country: CA (occurrence: CA)
  Receive Date: 20220127
  Receipt Date: 20220127
  Transmission Date: 20220423
  Serious: Yes (Other)
  Sender: FDA-Public Use
  Company Number: CA-JNJFOC-20220142310

PATIENT
  Age: 51 Year
  Sex: Female
  Weight: 72 kg

DRUGS (2)
  1. REMICADE [Suspect]
     Active Substance: INFLIXIMAB
     Indication: Crohn^s disease
     Route: 042
  2. XARELTO [Concomitant]
     Active Substance: RIVAROXABAN

REACTIONS (8)
  - Phlebitis [Not Recovered/Not Resolved]
  - C-reactive protein decreased [Not Recovered/Not Resolved]
  - Lung disorder [Not Recovered/Not Resolved]
  - Septic pulmonary embolism [Not Recovered/Not Resolved]
  - Abscess intestinal [Not Recovered/Not Resolved]
  - Mesenteric abscess [Not Recovered/Not Resolved]
  - Staphylococcal infection [Not Recovered/Not Resolved]
  - Off label use [Not Recovered/Not Resolved]
